FAERS Safety Report 8716478 (Version 3)
Quarter: 2012Q4

REPORT INFORMATION
  Report Type: 
  Country: US (occurrence: US)
  Receive Date: 20120810
  Receipt Date: 20121011
  Transmission Date: 20130627
  Serious: Yes (Hospitalization, Other)
  Sender: FDA-Public Use
  Company Number: US-009507513-2011SP046641

PATIENT

DRUGS (2)
  1. NUVARING [Suspect]
     Indication: CONTRACEPTION
     Dosage: UNK
     Dates: start: 2008, end: 20091101
  2. LEXAPRO [Concomitant]
     Indication: PRODUCT USED FOR UNKNOWN INDICATION
     Dates: start: 200908, end: 201008

REACTIONS (15)
  - Cerebral infarction [Recovered/Resolved]
  - Cerebral artery occlusion [Recovered/Resolved]
  - Hyperlipidaemia [Unknown]
  - Limb injury [Unknown]
  - Thrombocytosis [Recovering/Resolving]
  - Lipids increased [Unknown]
  - Dysthymic disorder [Unknown]
  - Diverticulitis [Unknown]
  - Attention deficit/hyperactivity disorder [Unknown]
  - Iron deficiency anaemia [Recovering/Resolving]
  - Myeloproliferative disorder [Unknown]
  - Transient ischaemic attack [Unknown]
  - Mole excision [Unknown]
  - Melanocytic naevus [Unknown]
  - Depression [Unknown]
